FAERS Safety Report 6875655-2 (Version None)
Quarter: 2010Q3

REPORT INFORMATION
  Report Type: 
  Country: None (occurrence: None)
  Receive Date: 20100727
  Receipt Date: 20100719
  Transmission Date: 20110219
  Serious: Yes (Hospitalization)
  Sender: FDA-Public Use
  Company Number: FR-ASTRAZENECA-2010SE02622

PATIENT
  Age: 77 Year
  Sex: Female

DRUGS (6)
  1. CRESTOR [Suspect]
     Indication: HYPERCHOLESTEROLAEMIA
     Route: 048
     Dates: end: 20090924
  2. FURADANTINE [Suspect]
     Route: 048
     Dates: end: 20090924
  3. LEXOMIL [Suspect]
     Route: 048
     Dates: end: 20090924
  4. RABEPRAZOLE SODIUM [Concomitant]
     Route: 048
  5. IMOVANE [Concomitant]
     Route: 048
  6. ZARKA [Concomitant]
     Route: 065

REACTIONS (2)
  - HEPATITIS [None]
  - INTERSTITIAL LUNG DISEASE [None]
